FAERS Safety Report 23323288 (Version 1)
Quarter: 2023Q4

REPORT INFORMATION
  Report Type: Other
  Country: US (occurrence: None)
  Receive Date: 20231220
  Receipt Date: 20231220
  Transmission Date: 20240110
  Serious: No
  Sender: FDA-Public Use
  Company Number: US-ROCHE-3291569

PATIENT
  Age: 67 Year
  Sex: Female

DRUGS (3)
  1. RITUXAN [Suspect]
     Active Substance: RITUXIMAB
     Indication: Rheumatoid arthritis
     Route: 065
  2. RITUXAN [Suspect]
     Active Substance: RITUXIMAB
     Indication: Mixed connective tissue disease
  3. USTEKINUMAB [Concomitant]
     Active Substance: USTEKINUMAB

REACTIONS (1)
  - Colitis [Recovering/Resolving]
